FAERS Safety Report 10184029 (Version 1)
Quarter: 2014Q2

REPORT INFORMATION
  Report Type: Spontaneous
  Country: JP (occurrence: JP)
  Receive Date: 20140520
  Receipt Date: 20140520
  Transmission Date: 20141212
  Serious: Yes (Other)
  Sender: FDA-Public Use
  Company Number: JP-GLAXOSMITHKLINE-B0992790A

PATIENT
  Age: 27 Year
  Sex: Male

DRUGS (7)
  1. LAMICTAL [Suspect]
     Indication: AFFECTIVE DISORDER
     Dosage: 25MG PER DAY
     Route: 048
  2. LAMICTAL [Suspect]
     Indication: AFFECTIVE DISORDER
     Dosage: 100MG PER DAY
     Route: 048
     Dates: start: 2014
  3. ABILIFY [Concomitant]
     Indication: SCHIZOPHRENIA
     Route: 048
     Dates: end: 20140428
  4. ZYPREXA [Concomitant]
     Indication: SCHIZOPHRENIA
     Route: 048
     Dates: start: 20140428
  5. LUVOX [Concomitant]
     Indication: DEPRESSION
     Route: 048
     Dates: end: 20140421
  6. BENZALIN [Concomitant]
     Route: 048
  7. NAUZELIN [Concomitant]
     Route: 048

REACTIONS (2)
  - Cellulitis [Recovering/Resolving]
  - Decreased appetite [Unknown]
